FAERS Safety Report 8240029 (Version 2)
Quarter: 2013Q2

REPORT INFORMATION
  Report Type: Report from Study
  Country: MX (occurrence: MX)
  Receive Date: 20111110
  Receipt Date: 20130625
  Transmission Date: 20140414
  Serious: Yes (Other)
  Sender: FDA-Public Use
  Company Number: PHHY2011MX097621

PATIENT
  Age: 46 Year
  Sex: Female

DRUGS (5)
  1. RASILEZ [Suspect]
     Indication: HYPERTENSION
     Dosage: 0.5 DF (300 MG ALISK), BID
     Route: 048
     Dates: start: 201110
  2. DIOVAN [Suspect]
     Indication: HYPERTENSION
     Dosage: 2 DF(320 MG), DAILY
     Dates: start: 201110
  3. DIOVAN [Suspect]
     Dosage: 1 DF (320 MG VALS), DAILY
     Route: 048
     Dates: start: 201110
  4. DIOVAN [Suspect]
     Dosage: 0.5 DF (320 MG VALS), DAILY
     Route: 048
  5. DIOVAN [Suspect]
     Dosage: 0.25 DF (320 MG VALS), DAILY
     Route: 048

REACTIONS (10)
  - Effusion [Recovered/Resolved]
  - Hypotension [Recovered/Resolved]
  - Loss of consciousness [Recovered/Resolved]
  - Hypertension [Recovered/Resolved]
  - Headache [Recovered/Resolved]
  - Swelling face [Recovered/Resolved]
  - Abdominal pain [Recovered/Resolved]
  - Local swelling [Recovered/Resolved]
  - Incorrect dose administered [Recovered/Resolved]
  - Wrong technique in drug usage process [Unknown]
